FAERS Safety Report 16652206 (Version 1)
Quarter: 2019Q3

REPORT INFORMATION
  Report Type: Spontaneous
  Country: US (occurrence: US)
  Receive Date: 20190731
  Receipt Date: 20190731
  Transmission Date: 20191004
  Serious: No
  Sender: FDA-Public Use
  Company Number: US-PFIZER INC-2019326754

PATIENT
  Age: 73 Year
  Sex: Female

DRUGS (10)
  1. VIACTIV [CALCIUM] [Concomitant]
     Dosage: UNK UNK, BID
  2. ENBREL [Concomitant]
     Active Substance: ETANERCEPT
     Dosage: 50 MILLIGRAM
     Route: 065
     Dates: start: 2017, end: 2019
  3. PANTOPRAZOLE [Concomitant]
     Active Substance: PANTOPRAZOLE
     Dosage: 40 MILLIGRAM, QD
  4. NAPROXEN. [Concomitant]
     Active Substance: NAPROXEN
     Dosage: UNK, AS NECESSARY
  5. TRAZODONE [Concomitant]
     Active Substance: TRAZODONE HYDROCHLORIDE
     Dosage: 50 MILLIGRAM, QD
  6. ASPIRIN [ACETYLSALICYLIC ACID] [Concomitant]
     Active Substance: ASPIRIN
     Dosage: 81 MILLIGRAM, QD
  7. CELEBREX [Suspect]
     Active Substance: CELECOXIB
     Dosage: UNK UNK, AS NECESSARY TO UNK UNK, EVERY OTHER WEEK
  8. FOLIC ACID. [Concomitant]
     Active Substance: FOLIC ACID
     Dosage: 1600 MILLIGRAM, QD
  9. ENBREL [Concomitant]
     Active Substance: ETANERCEPT
     Indication: RHEUMATOID ARTHRITIS
     Dosage: 50 MILLIGRAM
     Route: 065
  10. ENBREL [Concomitant]
     Active Substance: ETANERCEPT
     Dosage: 50 MILLIGRAM, Q2WK
     Route: 065
     Dates: start: 2019

REACTIONS (1)
  - Pain [Unknown]

NARRATIVE: CASE EVENT DATE: 2019
